FAERS Safety Report 17072419 (Version 1)
Quarter: 2019Q4

REPORT INFORMATION
  Report Type: Spontaneous
  Country: ES (occurrence: ES)
  Receive Date: 20191125
  Receipt Date: 20191125
  Transmission Date: 20200122
  Serious: Yes (Hospitalization, Disabling)
  Sender: FDA-Public Use
  Company Number: ES-MYLANLABS-2019M1112989

PATIENT
  Age: 75 Year
  Sex: Male

DRUGS (3)
  1. DILTIAZEM. [Suspect]
     Active Substance: DILTIAZEM
     Indication: ESSENTIAL HYPERTENSION
     Dosage: 240 MILLIGRAM, QD
     Route: 065
     Dates: start: 199905, end: 200002
  2. SIMVASTATIN. [Interacting]
     Active Substance: SIMVASTATIN
     Indication: TYPE IIA HYPERLIPIDAEMIA
     Dosage: UNK UNK, QD
     Route: 065
     Dates: start: 199911, end: 200002
  3. SIMVASTATIN. [Concomitant]
     Active Substance: SIMVASTATIN
     Indication: TYPE IIA HYPERLIPIDAEMIA
     Dosage: UNK UNK, QD
     Route: 065
     Dates: start: 1994, end: 199911

REACTIONS (5)
  - Rhabdomyolysis [Recovering/Resolving]
  - Drug interaction [Unknown]
  - Muscular weakness [Unknown]
  - Alanine aminotransferase increased [Recovering/Resolving]
  - Aspartate aminotransferase increased [Recovering/Resolving]

NARRATIVE: CASE EVENT DATE: 200002
